FAERS Safety Report 20628650 (Version 1)
Quarter: 2022Q1

REPORT INFORMATION
  Report Type: Spontaneous
  Country: US (occurrence: US)
  Receive Date: 20220323
  Receipt Date: 20220323
  Transmission Date: 20220424
  Serious: Yes (Other)
  Sender: FDA-Public Use
  Company Number: US-PFIZER INC-2021701976

PATIENT
  Age: 75 Year
  Sex: Female

DRUGS (6)
  1. HYDROCORTISONE ACETATE [Suspect]
     Active Substance: HYDROCORTISONE ACETATE
     Indication: Urticaria
     Dosage: UNK
     Dates: start: 20210421
  2. MELATONIN [Suspect]
     Active Substance: MELATONIN
     Indication: Medical diet
     Dosage: 10 MG, 1X/DAY (AT NIGHT)
     Route: 048
     Dates: start: 202101, end: 20210420
  3. MELATONIN [Suspect]
     Active Substance: MELATONIN
     Indication: Sleep disorder
     Dosage: TOOK A BITE OF ONE TABLET
     Route: 048
     Dates: start: 20210421, end: 20210421
  4. BENADRYL [Suspect]
     Active Substance: DIPHENHYDRAMINE HYDROCHLORIDE
     Indication: Pruritus
     Dosage: 25 MG (ONE TABLET EVERY 6 HRS)
     Route: 048
     Dates: start: 20210421
  5. BENADRYL [Suspect]
     Active Substance: DIPHENHYDRAMINE HYDROCHLORIDE
     Indication: Swollen tongue
  6. BENADRYL [Suspect]
     Active Substance: DIPHENHYDRAMINE HYDROCHLORIDE
     Indication: Urticaria

REACTIONS (3)
  - Pruritus [Unknown]
  - Urticaria [Unknown]
  - Swollen tongue [Unknown]

NARRATIVE: CASE EVENT DATE: 20210423
